FAERS Safety Report 9684891 (Version 1)
Quarter: 2013Q4

REPORT INFORMATION
  Report Type: Spontaneous
  Country: US (occurrence: US)
  Receive Date: 20131113
  Receipt Date: 20131113
  Transmission Date: 20140711
  Serious: No
  Sender: FDA-Public Use
  Company Number: US-009507513-1311USA003386

PATIENT
  Age: 51 Year
  Sex: Female

DRUGS (3)
  1. BETAMETHASONE VALERATE [Suspect]
     Indication: RASH ERYTHEMATOUS
     Dosage: UNK
     Route: 061
     Dates: start: 2012
  2. BETAMETHASONE VALERATE [Suspect]
     Indication: DERMATOMYOSITIS
  3. CIMETIDINE [Concomitant]
     Dosage: 800 MG, BID

REACTIONS (1)
  - Drug ineffective [Unknown]
